FAERS Safety Report 10645053 (Version 2)
Quarter: 2014Q4

REPORT INFORMATION
  Report Type: Spontaneous
  Country: US (occurrence: None)
  Receive Date: 20141209
  Receipt Date: 20141231
  Transmission Date: 20150529
  Serious: Yes (Hospitalization)
  Sender: FDA-Public Use
  Company Number: 2014AP005993

PATIENT
  Age: 22 Year
  Sex: Female
  Weight: 55 kg

DRUGS (4)
  1. ZOLOFT (SERTRALINE HYDROCHLORIDE)? [Concomitant]
  2. FERRIPROX [Suspect]
     Active Substance: DEFERIPRONE
     Indication: THALASSAEMIA
     Route: 048
     Dates: start: 20131001
  3. VITAMIN D /00107901/ (ERGOCALCIFEROL) [Concomitant]
  4. DESFERAL (DEFEROXAMINE MESILATE) [Concomitant]

REACTIONS (2)
  - Hospitalisation [None]
  - Device related infection [None]

NARRATIVE: CASE EVENT DATE: 20141111
